APPROVED DRUG PRODUCT: CLOFIBRATE
Active Ingredient: CLOFIBRATE
Strength: 500MG
Dosage Form/Route: CAPSULE;ORAL
Application: A070531 | Product #001
Applicant: USL PHARMA LLC
Approved: Jun 16, 1986 | RLD: No | RS: No | Type: DISCN